FAERS Safety Report 5072786-7 (Version None)
Quarter: 2006Q3

REPORT INFORMATION
  Report Type: 
  Country: None (occurrence: None)
  Receive Date: 20060801
  Receipt Date: 20060718
  Transmission Date: 20061208
  Serious: Yes (Hospitalization)
  Sender: FDA-Public Use
  Company Number: FR200606003193

PATIENT
  Age: 63 Year
  Sex: Female

DRUGS (9)
  1. FORTEO [Suspect]
     Indication: OSTEOPOROSIS
     Dosage: 20 UG DAILY (1/D), SUBCUTANEOUS
     Route: 058
     Dates: start: 20050411, end: 20060607
  2. FORTEO [Suspect]
     Indication: OSTEOPOROSIS
     Dosage: 20 UG DAILY (1/D), SUBCUTANEOUS
     Route: 058
     Dates: start: 20060609
  3. FORTEO [Concomitant]
  4. LERCANIDIPINE [Concomitant]
  5. CITALOPRAM [Concomitant]
  6. CELLCEPT [Concomitant]
  7. PREDNISONE TAB [Concomitant]
  8. CALCIDIA (CALCIUM CARBONATE) [Concomitant]
  9. MORPHINE SULFATE [Concomitant]

REACTIONS (1)
  - LUNG INFECTION [None]
